APPROVED DRUG PRODUCT: THIOTEPA
Active Ingredient: THIOTEPA
Strength: 15MG/VIAL
Dosage Form/Route: INJECTABLE;INJECTION
Application: A211831 | Product #001 | TE Code: AP
Applicant: REGCON HOLDINGS LLC
Approved: Dec 8, 2021 | RLD: No | RS: No | Type: RX